FAERS Safety Report 21499996 (Version 2)
Quarter: 2023Q1

REPORT INFORMATION
  Report Type: Report from Study
  Country: CA (occurrence: CA)
  Receive Date: 20221024
  Receipt Date: 20230314
  Transmission Date: 20230418
  Serious: Yes (Other)
  Sender: FDA-Public Use
  Company Number: CA-BAUSCH-BL-2022-023963

PATIENT
  Age: 51 Year
  Sex: Female

DRUGS (8)
  1. WELLBUTRIN [Suspect]
     Active Substance: BUPROPION HYDROCHLORIDE
     Indication: Product used for unknown indication
     Dosage: TABLET (EXTENDED-RELEASE)
     Route: 065
  2. MEPOLIZUMAB [Suspect]
     Active Substance: MEPOLIZUMAB
     Indication: Asthma
     Route: 058
  3. BUDESONIDE\FORMOTEROL FUMARATE [Concomitant]
     Active Substance: BUDESONIDE\FORMOTEROL FUMARATE
     Indication: Product used for unknown indication
     Route: 065
  4. PREDNISONE [Concomitant]
     Active Substance: PREDNISONE
     Indication: Product used for unknown indication
     Route: 065
  5. CETIRIZINE HYDROCHLORIDE [Concomitant]
     Active Substance: CETIRIZINE HYDROCHLORIDE
     Indication: Product used for unknown indication
     Route: 065
  6. SINGULAIR [Concomitant]
     Active Substance: MONTELUKAST SODIUM
     Indication: Product used for unknown indication
     Route: 065
  7. SPIRIVA [Concomitant]
     Active Substance: TIOTROPIUM BROMIDE MONOHYDRATE
     Indication: Product used for unknown indication
     Route: 065
  8. BUDESONIDE\FORMOTEROL FUMARATE [Concomitant]
     Active Substance: BUDESONIDE\FORMOTEROL FUMARATE
     Indication: Product used for unknown indication
     Dosage: TABLET (EXTENDED RELEASE)
     Route: 065

REACTIONS (16)
  - Abdominal discomfort [Unknown]
  - Antineutrophil cytoplasmic antibody positive [Unknown]
  - Cardiac disorder [Unknown]
  - Chest discomfort [Unknown]
  - Condition aggravated [Unknown]
  - Lung infiltration [Unknown]
  - Nasal congestion [Unknown]
  - Pericarditis [Unknown]
  - Pleurisy [Unknown]
  - Serositis [Unknown]
  - Sinus disorder [Unknown]
  - Wheezing [Unknown]
  - Chest pain [Unknown]
  - Drug hypersensitivity [Unknown]
  - Headache [Unknown]
  - Therapeutic product ineffective [Unknown]
